FAERS Safety Report 9285596 (Version 2)
Quarter: 2013Q2

REPORT INFORMATION
  Report Type: Spontaneous
  Country: JP (occurrence: JP)
  Receive Date: 20130513
  Receipt Date: 20130527
  Transmission Date: 20140414
  Serious: Yes (Hospitalization, Other)
  Sender: FDA-Public Use
  Company Number: PHHY2013JP046668

PATIENT
  Age: 43 Year
  Sex: 0
  Weight: 59 kg

DRUGS (20)
  1. BASILIXIMAB [Suspect]
     Indication: RENAL TRANSPLANT
     Dosage: 20 MG, UNK
     Route: 042
  2. BASILIXIMAB [Suspect]
     Dosage: 20 MG, UNK
     Route: 042
  3. TACROLIMUS [Concomitant]
     Indication: RENAL TRANSPLANT
     Dosage: 6 MG, UNK
     Route: 048
  4. TACROLIMUS [Concomitant]
     Dosage: 2.5 MG, UNK
     Route: 042
  5. MYCOPHENOLATE MOFETIL [Concomitant]
     Indication: RENAL TRANSPLANT
     Dosage: 1000 MG, UNK
     Route: 048
  6. MYCOPHENOLATE MOFETIL [Concomitant]
     Dosage: 2000 MG, UNK
     Route: 048
  7. METHYLPREDNISOLONE SODIUM SUCCINATE [Concomitant]
     Indication: RENAL TRANSPLANT
     Dosage: 500 MG, UNK
     Route: 042
  8. PREDNISOLONE [Concomitant]
     Indication: RENAL TRANSPLANT
     Dosage: 20 MG, UNK
     Route: 048
  9. PREDNISOLONE [Concomitant]
     Dosage: 15 MG, UNK
     Route: 048
  10. PREDNISOLONE [Concomitant]
     Dosage: 10 MG, UNK
     Route: 048
  11. PREDNISOLONE [Concomitant]
     Dosage: 5 MG, UNK
     Route: 048
  12. PREDNISOLONE ACETATE [Concomitant]
     Dosage: 50 MG, UNK
     Route: 042
  13. PREDNISOLONE ACETATE [Concomitant]
     Dosage: 40 MG, UNK
     Route: 042
  14. PREDNISOLONE ACETATE [Concomitant]
     Dosage: 30 MG, UNK
     Route: 042
  15. NIFEDIPINE [Concomitant]
     Indication: HYPERTENSION
     Dosage: 20 MG, TID
  16. AMLODIPINE BESILATE [Concomitant]
     Indication: HYPERTENSION
     Dosage: 5 MG, BID
  17. IRBESARTAN [Concomitant]
     Indication: HYPERTENSION
     Dosage: 100 MG, UNK
  18. CARVEDILOL [Concomitant]
     Indication: HYPERTENSION
     Dosage: 10 MG, UNK
  19. AZELNIDIPINE [Concomitant]
     Indication: HYPERTENSION
     Dosage: 8 MG, BID
  20. DOXAZOSIN MESILATE [Concomitant]
     Indication: HYPERTENSION
     Dosage: 2 MG, UNK

REACTIONS (18)
  - Cytomegalovirus infection [Recovering/Resolving]
  - Cerebral infarction [Unknown]
  - Dysarthria [Unknown]
  - Hemiplegia [Unknown]
  - Sensory disturbance [Unknown]
  - Ataxia [Unknown]
  - Altered state of consciousness [Recovering/Resolving]
  - Ileus [Unknown]
  - Renal tubular necrosis [Unknown]
  - Renal vessel disorder [Unknown]
  - Sepsis [Unknown]
  - Urinary tract infection [Recovering/Resolving]
  - Anuria [Recovering/Resolving]
  - Bladder disorder [Unknown]
  - Anorectal disorder [Unknown]
  - Chest pain [Unknown]
  - Rales [Unknown]
  - Sputum increased [Unknown]
